FAERS Safety Report 25808488 (Version 2)
Quarter: 2025Q4

REPORT INFORMATION
  Report Type: Spontaneous
  Country: EU (occurrence: EU)
  Receive Date: 20250916
  Receipt Date: 20251013
  Transmission Date: 20260118
  Serious: Yes (Life-Threatening, Hospitalization)
  Sender: GUERBET
  Company Number: None

PATIENT
  Age: 56 Year
  Sex: Female
  Weight: 88 kg

DRUGS (2)
  1. OPTIRAY 350 [Suspect]
     Active Substance: IOVERSOL
     Indication: Computerised tomogram abdomen
     Route: 042
     Dates: start: 20250808, end: 20250808
  2. OPTIRAY 350 [Suspect]
     Active Substance: IOVERSOL
     Indication: Scan with contrast

REACTIONS (3)
  - Anaphylactic shock [Recovered/Resolved]
  - Lactic acidosis [Recovering/Resolving]
  - Cardiac arrest [Recovered/Resolved]

NARRATIVE: CASE EVENT DATE: 20250808
